FAERS Safety Report 4635282-4 (Version None)
Quarter: 2005Q2

REPORT INFORMATION
  Report Type: 
  Country: None (occurrence: None)
  Receive Date: 20050414
  Receipt Date: 20050223
  Transmission Date: 20051028
  Serious: Yes (Other)
  Sender: FDA-Public Use
  Company Number: PHBS2005JP02843

PATIENT
  Age: 13 Year
  Sex: Female
  Weight: 47 kg

DRUGS (2)
  1. TOFRANIL [Suspect]
     Indication: ENURESIS
     Dosage: 10 MG/D
     Route: 048
     Dates: start: 20041202, end: 20041227
  2. TOFRANIL [Suspect]
     Dosage: 20 MG/D
     Route: 048
     Dates: start: 20041228, end: 20050222

REACTIONS (2)
  - AMENORRHOEA [None]
  - OLIGOMENORRHOEA [None]
